FAERS Safety Report 5940432-3 (Version None)
Quarter: 2008Q4

REPORT INFORMATION
  Report Type: 
  Country: None (occurrence: None)
  Receive Date: 20081104
  Receipt Date: 20081027
  Transmission Date: 20090506
  Serious: Yes (Disabling)
  Sender: FDA-Public Use
  Company Number: DE-ABBOTT-08P-062-0481298-00

PATIENT
  Sex: Female
  Weight: 58 kg

DRUGS (2)
  1. HUMIRA [Suspect]
     Indication: CROHN'S DISEASE
     Route: 058
     Dates: start: 20071206, end: 20080908
  2. CORTISONE ACETATE [Concomitant]
     Indication: CROHN'S DISEASE

REACTIONS (3)
  - BLINDNESS [None]
  - GLAUCOMA [None]
  - OPTIC NEUROPATHY [None]
